FAERS Safety Report 7574013 (Version 3)
Quarter: 2013Q4

REPORT INFORMATION
  Report Type: Spontaneous
  Country: US (occurrence: US)
  Receive Date: 20100907
  Receipt Date: 20131126
  Transmission Date: 20140711
  Serious: Yes (Other)
  Sender: FDA-Public Use
  Company Number: US-BAYER-201032532NA

PATIENT
  Age: 26 Year
  Sex: Female
  Weight: 65 kg

DRUGS (6)
  1. YAZ [Suspect]
     Indication: PRODUCT USED FOR UNKNOWN INDICATION
     Route: 048
     Dates: start: 200902, end: 200912
  2. YASMIN [Suspect]
     Indication: PRODUCT USED FOR UNKNOWN INDICATION
     Route: 048
  3. HYOSCYAMINE [Concomitant]
     Indication: ABDOMINAL PAIN
     Dosage: UNK
     Dates: start: 20090727
  4. LEXAPRO [Concomitant]
     Dosage: UNK UNK, QD
     Route: 048
  5. EXCEDRIN [ACETYLSALICYLIC ACID,CAFFEINE,PARACETAMOL,SALICYLAMIDE] [Concomitant]
     Indication: MIGRAINE
  6. TYLENOL [PARACETAMOL] [Concomitant]
     Dosage: UNK UNK, PRN

REACTIONS (4)
  - Cholecystectomy [Unknown]
  - Injury [Unknown]
  - Biliary dyskinesia [None]
  - Cholecystitis chronic [None]
